FAERS Safety Report 8513935-5 (Version None)
Quarter: 2012Q3

REPORT INFORMATION
  Report Type: 
  Country: None (occurrence: None)
  Receive Date: 20120717
  Receipt Date: 20120628
  Transmission Date: 20120928
  Serious: No
  Sender: FDA-Public Use
  Company Number: US-009507513-2012SP030199

PATIENT
  Sex: Male

DRUGS (1)
  1. NASONEX [Suspect]
     Dosage: UNK
     Dates: start: 20070101

REACTIONS (2)
  - NASAL CONGESTION [None]
  - EXPIRED DRUG ADMINISTERED [None]
